FAERS Safety Report 18453468 (Version 2)
Quarter: 2021Q4

REPORT INFORMATION
  Report Type: Spontaneous
  Country: JP (occurrence: JP)
  Receive Date: 20201102
  Receipt Date: 20211105
  Transmission Date: 20220303
  Serious: Yes (Hospitalization)
  Sender: FDA-Public Use
  Company Number: JP-ACTELION-A-CH2019-194157

PATIENT
  Age: 19 Year
  Sex: Female
  Weight: 49.4 kg

DRUGS (24)
  1. UPTRAVI [Suspect]
     Active Substance: SELEXIPAG
     Indication: Pulmonary arterial hypertension
     Dosage: 0.2 MG, BID
     Route: 048
     Dates: start: 20171204, end: 20171210
  2. UPTRAVI [Suspect]
     Active Substance: SELEXIPAG
     Dosage: 0.4 MG, BID
     Route: 048
     Dates: start: 20171211, end: 20171217
  3. UPTRAVI [Suspect]
     Active Substance: SELEXIPAG
     Dosage: 0.6 MG, BID
     Route: 048
     Dates: start: 20171218, end: 20171224
  4. UPTRAVI [Suspect]
     Active Substance: SELEXIPAG
     Dosage: 0.8 MG, BID
     Route: 048
     Dates: start: 20171225, end: 20180107
  5. UPTRAVI [Suspect]
     Active Substance: SELEXIPAG
     Dosage: 1 MG, BID
     Route: 048
     Dates: start: 20180108, end: 20180114
  6. UPTRAVI [Suspect]
     Active Substance: SELEXIPAG
     Dosage: 1.2 MG, BID
     Route: 048
     Dates: start: 20180115, end: 20180121
  7. UPTRAVI [Suspect]
     Active Substance: SELEXIPAG
     Dosage: 1.4 MG, BID
     Route: 048
     Dates: start: 20180122, end: 20180128
  8. UPTRAVI [Suspect]
     Active Substance: SELEXIPAG
     Dosage: 1.6 MG, BID
     Route: 048
     Dates: start: 20180129
  9. FUROSEMIDE [Concomitant]
     Active Substance: FUROSEMIDE
     Dosage: 15 MG, QD
     Dates: end: 20181108
  10. FUROSEMIDE [Concomitant]
     Active Substance: FUROSEMIDE
     Dosage: 30 MG, QD
     Dates: start: 20181109
  11. SPIRONOLACTONE [Concomitant]
     Active Substance: SPIRONOLACTONE
     Dosage: 10 MG, QD
     Dates: end: 20181108
  12. SPIRONOLACTONE [Concomitant]
     Active Substance: SPIRONOLACTONE
     Dosage: 20 MG, QD
     Dates: start: 20181109
  13. FLOLAN [Concomitant]
     Active Substance: EPOPROSTENOL SODIUM
     Indication: Pulmonary arterial hypertension
     Dosage: UNK
     Dates: end: 20180220
  14. AMBRISENTAN [Concomitant]
     Active Substance: AMBRISENTAN
     Indication: Pulmonary arterial hypertension
     Dosage: 2.5 MG, QD
  15. PURSENNID [Concomitant]
     Indication: Aortic dilatation
     Dosage: 24 MG, QD
     Dates: start: 20181029, end: 20181029
  16. SODIUM BICARBONATE\SODIUM PHOSPHATE, MONOBASIC [Concomitant]
     Active Substance: SODIUM BICARBONATE\SODIUM PHOSPHATE, MONOBASIC
     Indication: Aortic dilatation
     Dosage: 1 DF, QD
     Dates: start: 20181030, end: 20181030
  17. WARFARIN [Concomitant]
     Active Substance: WARFARIN
     Indication: Aortic dilatation
     Dosage: UNK
     Dates: start: 20181101
  18. TRAMCET [Concomitant]
     Active Substance: ACETAMINOPHEN\TRAMADOL
     Indication: Aortic dilatation
     Dosage: 3 DF, QD
     Dates: start: 20181030, end: 20181104
  19. LOXOPROFEN SODIUM [Concomitant]
     Active Substance: LOXOPROFEN SODIUM
     Indication: Aortic dilatation
     Dosage: 1 DF, QD
     Dates: start: 20181102, end: 20181120
  20. SAMSCA [Concomitant]
     Active Substance: TOLVAPTAN
     Indication: Aortic dilatation
     Dosage: 7.5 MG, QD
     Dates: start: 20181103, end: 20181113
  21. LEVOFLOXACIN [Concomitant]
     Active Substance: LEVOFLOXACIN
     Indication: Aortic dilatation
     Dosage: 500 MG, QD
     Dates: start: 20181104, end: 20181108
  22. ASPIRIN [Concomitant]
     Active Substance: ASPIRIN
  23. BEPRIDIL [Concomitant]
     Active Substance: BEPRIDIL
  24. BISOPROLOL FUMARATE [Concomitant]
     Active Substance: BISOPROLOL FUMARATE

REACTIONS (10)
  - Aortic valve incompetence [Recovered/Resolved]
  - Aortic dilatation [Recovered/Resolved]
  - Concomitant disease progression [Recovered/Resolved]
  - Atrial septal defect repair [Recovered/Resolved]
  - Aortic surgery [Recovered/Resolved]
  - Cardiac aneurysm [Recovered/Resolved]
  - Postpericardiotomy syndrome [Recovered/Resolved]
  - Atrial flutter [Recovered/Resolved]
  - Pneumonia [Recovered/Resolved]
  - Anaemia [Recovering/Resolving]

NARRATIVE: CASE EVENT DATE: 20180709
